FAERS Safety Report 24067355 (Version 1)
Quarter: 2024Q3

REPORT INFORMATION
  Report Type: Spontaneous
  Country: FR (occurrence: None)
  Receive Date: 20240709
  Receipt Date: 20240709
  Transmission Date: 20241017
  Serious: Yes (Death, Other)
  Sender: ASTRAZENECA
  Company Number: 2024A156007

PATIENT
  Sex: Female
  Weight: 62 kg

DRUGS (4)
  1. DURVALUMAB [Suspect]
     Active Substance: DURVALUMAB
     Indication: Non-small cell lung cancer
     Dosage: (10 MG/KG Q2W) 3
     Dates: start: 20200426, end: 20200525
  2. NIVOLUMAB [Concomitant]
     Active Substance: NIVOLUMAB
     Dates: start: 20210315, end: 20220429
  3. ALIMTA [Concomitant]
     Active Substance: PEMETREXED DISODIUM
     Dates: start: 20210315, end: 20220429
  4. TAXOL [Concomitant]
     Active Substance: PACLITAXEL
     Dates: start: 20210315, end: 20220429

REACTIONS (8)
  - Malignant neoplasm progression [Fatal]
  - Lymphangitis [Unknown]
  - Pleural effusion [Unknown]
  - Toxicity to various agents [Unknown]
  - Pneumonitis [Unknown]
  - Eastern Cooperative Oncology Group performance status [Unknown]
  - Asthenia [Unknown]
  - Dysphagia [Unknown]
